FAERS Safety Report 5103481-3 (Version None)
Quarter: 2006Q3

REPORT INFORMATION
  Report Type: 
  Country: None (occurrence: None)
  Receive Date: 20060913
  Receipt Date: 20060905
  Transmission Date: 20061208
  Serious: Yes (Death, Hospitalization)
  Sender: FDA-Public Use
  Company Number: US-JNJFOC-20060902245

PATIENT
  Age: 54 Year
  Sex: Male

DRUGS (4)
  1. CYCLOBENZAPRINE 10 MG [Suspect]
     Indication: SUICIDE ATTEMPT
     Route: 048
  2. ACETAMINOPHEN AND HYDROCODONE BITARTRATE [Suspect]
     Indication: SUICIDE ATTEMPT
     Route: 048
  3. PROMETHAZINE [Suspect]
     Indication: SUICIDE ATTEMPT
     Route: 048
  4. METOPROLOL [Suspect]
     Indication: SUICIDE ATTEMPT
     Route: 048

REACTIONS (5)
  - COMPLETED SUICIDE [None]
  - ELECTROCARDIOGRAM QRS COMPLEX PROLONGED [None]
  - HEPATOTOXICITY [None]
  - HYPOTENSION [None]
  - MULTIPLE DRUG OVERDOSE [None]
